FAERS Safety Report 7938355-3 (Version None)
Quarter: 2011Q4

REPORT INFORMATION
  Report Type: 
  Country: None (occurrence: None)
  Receive Date: 20111123
  Receipt Date: 20111122
  Transmission Date: 20120403
  Serious: Yes (Hospitalization)
  Sender: FDA-Public Use
  Company Number: US-AMGEN-USASP2011060603

PATIENT
  Age: 62 Year
  Sex: Female
  Weight: 111.11 kg

DRUGS (3)
  1. NPLATE [Suspect]
     Indication: IDIOPATHIC THROMBOCYTOPENIC PURPURA
     Dosage: 600 MUG, QWK
     Route: 058
     Dates: start: 20110215, end: 20111118
  2. LASIX [Concomitant]
  3. DIAZEPAM [Concomitant]

REACTIONS (1)
  - THROMBOSIS [None]
